FAERS Safety Report 5384336-6 (Version None)
Quarter: 2007Q3

REPORT INFORMATION
  Report Type: 
  Country: None (occurrence: None)
  Receive Date: 20070710
  Receipt Date: 20060814
  Transmission Date: 20080115
  Serious: Yes (Other)
  Sender: FDA-Public Use
  Company Number: 2006-02107

PATIENT
  Age: 57 Year
  Sex: Male
  Weight: 117.2 kg

DRUGS (1)
  1. VELCADE [Suspect]
     Indication: MULTIPLE MYELOMA
     Dosage: 3.10 MG, INTRAVENOUS
     Route: 042
     Dates: start: 20060724

REACTIONS (1)
  - ILEUS [None]
